FAERS Safety Report 5057403-4 (Version None)
Quarter: 2006Q3

REPORT INFORMATION
  Report Type: 
  Country: None (occurrence: None)
  Receive Date: 20060721
  Receipt Date: 20050921
  Transmission Date: 20061208
  Serious: No
  Sender: FDA-Public Use
  Company Number: US-GLAXOSMITHKLINE-A0575231A

PATIENT
  Age: 68 Year
  Sex: Female

DRUGS (2)
  1. AVANDIA [Suspect]
     Dosage: 4MG PER DAY
     Route: 048
     Dates: start: 20050920
  2. PROTONIX [Concomitant]

REACTIONS (7)
  - BLOOD GLUCOSE DECREASED [None]
  - FEELING HOT [None]
  - JOINT SWELLING [None]
  - LYMPHADENOPATHY [None]
  - PAIN [None]
  - PHARYNGOLARYNGEAL PAIN [None]
  - SENSORY DISTURBANCE [None]
